FAERS Safety Report 19838536 (Version 2)
Quarter: 2021Q3

REPORT INFORMATION
  Report Type: Other
  Country: CA (occurrence: CA)
  Receive Date: 20210916
  Receipt Date: 20210923
  Transmission Date: 20211014
  Serious: Yes (Death, Other)
  Sender: FDA-Public Use
  Company Number: CA-APOTEX-2021AP042531

PATIENT
  Age: 74 Year
  Sex: Female

DRUGS (1)
  1. APO?DASATINIB [Suspect]
     Active Substance: DASATINIB
     Indication: HAEMATOLOGICAL MALIGNANCY
     Dosage: 100 MILLIGRAM
     Route: 048
     Dates: start: 20200703

REACTIONS (1)
  - Pancreatic carcinoma [Fatal]

NARRATIVE: CASE EVENT DATE: 202104
